FAERS Safety Report 24458531 (Version 1)
Quarter: 2024Q4

REPORT INFORMATION
  Report Type: Report from Study
  Country: US (occurrence: US)
  Receive Date: 20241018
  Receipt Date: 20241018
  Transmission Date: 20250115
  Serious: No
  Sender: ROCHE
  Company Number: US-ROCHE-3520267

PATIENT
  Age: 65 Year
  Sex: Female

DRUGS (20)
  1. RITUXAN [Suspect]
     Active Substance: RITUXIMAB
     Indication: Polymyositis
     Dosage: THAN EVERY 6 MONTH
     Route: 041
  2. RITUXAN [Suspect]
     Active Substance: RITUXIMAB
     Indication: Myopathy
  3. DIAZEPAM [Concomitant]
     Active Substance: DIAZEPAM
  4. DICYCLOMINE [Concomitant]
     Active Substance: DICYCLOMINE HYDROCHLORIDE
  5. METOPROLOL [Concomitant]
     Active Substance: METOPROLOL
  6. MIDODRINE [Concomitant]
     Active Substance: MIDODRINE
  7. MONTELUKAST [Concomitant]
     Active Substance: MONTELUKAST
  8. MORPHINE [Concomitant]
     Active Substance: MORPHINE
  9. NYSTATIN [Concomitant]
     Active Substance: NYSTATIN
  10. ONDANSETRON [Concomitant]
     Active Substance: ONDANSETRON
  11. OXYCODONE [Concomitant]
     Active Substance: OXYCODONE
  12. PANTOPRAZOLE [Concomitant]
     Active Substance: PANTOPRAZOLE
  13. PROMETHAZINE [Concomitant]
     Active Substance: PROMETHAZINE HYDROCHLORIDE
  14. AMITRIPTYLINE [Concomitant]
     Active Substance: AMITRIPTYLINE
  15. METOCLOPRAMIDE [Concomitant]
     Active Substance: METOCLOPRAMIDE
  16. VOLTAREN [Concomitant]
     Active Substance: DICLOFENAC SODIUM
  17. CELLCEPT [Concomitant]
     Active Substance: MYCOPHENOLATE MOFETIL
  18. PREDNISOLONE [Concomitant]
     Active Substance: PREDNISOLONE
  19. ACTHAR [Concomitant]
     Active Substance: CORTICOTROPIN
  20. MORPHINE [Concomitant]
     Active Substance: MORPHINE

REACTIONS (15)
  - Asthenia [Unknown]
  - Neck pain [Unknown]
  - Musculoskeletal stiffness [Unknown]
  - Fatigue [Unknown]
  - Weight decreased [Unknown]
  - Dry mouth [Unknown]
  - Vision blurred [Unknown]
  - Cough [Unknown]
  - Oedema [Unknown]
  - Abdominal pain [Unknown]
  - Depression [Unknown]
  - Infection [Unknown]
  - Off label use [Unknown]
  - Arthralgia [Unknown]
  - Pain in extremity [Unknown]
